FAERS Safety Report 4512627-7 (Version None)
Quarter: 2004Q4

REPORT INFORMATION
  Report Type: 
  Country: None (occurrence: None)
  Receive Date: 20041129
  Receipt Date: 20041119
  Transmission Date: 20050328
  Serious: Yes (Disabling, Other)
  Sender: FDA-Public Use
  Company Number: US-MERCK-0411USA03233

PATIENT
  Sex: Female

DRUGS (1)
  1. VIOXX [Suspect]
     Route: 048

REACTIONS (8)
  - ADVERSE EVENT [None]
  - ANGINA PECTORIS [None]
  - ANGIOPATHY [None]
  - CARDIAC DISORDER [None]
  - INJURY [None]
  - MULTI-ORGAN DISORDER [None]
  - PAIN [None]
  - PALPITATIONS [None]
